FAERS Safety Report 25827505 (Version 1)
Quarter: 2025Q3

REPORT INFORMATION
  Report Type: Spontaneous
  Country: US (occurrence: None)
  Receive Date: 20250920
  Receipt Date: 20250920
  Transmission Date: 20251021
  Serious: No
  Sender: Harrow Health
  Company Number: US-HARROW-HAR-2025-US-00505

PATIENT
  Sex: Female

DRUGS (3)
  1. VEVYE [Suspect]
     Active Substance: CYCLOSPORINE
     Route: 047
  2. VITAMIN D [Concomitant]
     Active Substance: VITAMIN D NOS
  3. VITAMIN B [Concomitant]
     Active Substance: VITAMIN B

REACTIONS (2)
  - Eye pain [Unknown]
  - Foreign body sensation in eyes [Unknown]
